FAERS Safety Report 16915920 (Version 4)
Quarter: 2019Q4

REPORT INFORMATION
  Report Type: Report from Study
  Country: US (occurrence: US)
  Receive Date: 20191014
  Receipt Date: 20191125
  Transmission Date: 20200122
  Serious: Yes (Hospitalization, Other)
  Sender: FDA-Public Use
  Company Number: US-JNJFOC-20191002185

PATIENT
  Age: 35 Year
  Sex: Female
  Weight: 122.58 kg

DRUGS (6)
  1. SPRAVATO [Suspect]
     Active Substance: ESKETAMINE
     Indication: DEPRESSION
     Dates: start: 20190930, end: 20191001
  2. CELEBREX [Concomitant]
     Active Substance: CELECOXIB
     Indication: MAJOR DEPRESSION
  3. OXYCODONE [Concomitant]
     Active Substance: OXYCODONE
     Indication: PAIN
  4. TRAZODONE [Concomitant]
     Active Substance: TRAZODONE HYDROCHLORIDE
     Indication: INSOMNIA
     Dosage: AT BEDTIME
  5. XANAX [Concomitant]
     Active Substance: ALPRAZOLAM
     Indication: GENERALISED ANXIETY DISORDER
  6. CELEXA [Concomitant]
     Active Substance: CITALOPRAM HYDROBROMIDE

REACTIONS (14)
  - Feeling of despair [Unknown]
  - Loss of consciousness [Recovered/Resolved]
  - Suicidal ideation [Unknown]
  - Speech disorder [Not Recovered/Not Resolved]
  - Thinking abnormal [Not Recovered/Not Resolved]
  - Sedation [Recovered/Resolved]
  - Dissociation [Not Recovered/Not Resolved]
  - Therapeutic product effect prolonged [Unknown]
  - Anxiety [Recovered/Resolved]
  - Confusional state [Unknown]
  - Catatonia [Not Recovered/Not Resolved]
  - Dizziness [Unknown]
  - Visual impairment [Recovered/Resolved]
  - Paraesthesia [Unknown]

NARRATIVE: CASE EVENT DATE: 20190930
